FAERS Safety Report 20181473 (Version 1)
Quarter: 2021Q4

REPORT INFORMATION
  Report Type: Spontaneous
  Country: US (occurrence: None)
  Receive Date: 20211213
  Receipt Date: 20211213
  Transmission Date: 20220304
  Serious: Yes (Hospitalization)
  Sender: FDA-Public Use
  Company Number: None

PATIENT
  Age: 42 Year
  Sex: Female
  Weight: 82.6 kg

DRUGS (1)
  1. TAXOL [Suspect]
     Active Substance: PACLITAXEL
     Indication: Breast cancer
     Dosage: FREQUENCY : WEEKLY;?
     Route: 041
     Dates: start: 20210928, end: 20211117

REACTIONS (2)
  - Pyrexia [None]
  - COVID-19 [None]

NARRATIVE: CASE EVENT DATE: 20211117
